FAERS Safety Report 5196831-3 (Version None)
Quarter: 2006Q4

REPORT INFORMATION
  Report Type: 
  Country: None (occurrence: None)
  Receive Date: 20061227
  Receipt Date: 20061215
  Transmission Date: 20070319
  Serious: Yes (Other)
  Sender: FDA-Public Use
  Company Number: 2006154030

PATIENT
  Sex: Female

DRUGS (2)
  1. GEODON [Suspect]
     Dates: end: 20061215
  2. LITHIUM CARBONATE [Suspect]

REACTIONS (1)
  - NEUROLEPTIC MALIGNANT SYNDROME [None]
